FAERS Safety Report 17734092 (Version 3)
Quarter: 2021Q2

REPORT INFORMATION
  Report Type: Spontaneous
  Country: US (occurrence: US)
  Receive Date: 20200501
  Receipt Date: 20210624
  Transmission Date: 20210716
  Serious: Yes (Other)
  Sender: FDA-Public Use
  Company Number: US-GILEAD-2020-0462970

PATIENT
  Age: 57 Year
  Sex: Male
  Weight: 94.4 kg

DRUGS (26)
  1. PREZISTA [Concomitant]
     Active Substance: DARUNAVIR ETHANOLATE
  2. REYATAZ [Concomitant]
     Active Substance: ATAZANAVIR SULFATE
  3. CRIXIVAN [Concomitant]
     Active Substance: INDINAVIR SULFATE
  4. NORVIR [Concomitant]
     Active Substance: RITONAVIR
  5. SUSTIVA [Concomitant]
     Active Substance: EFAVIRENZ
  6. DESCOVY [Concomitant]
     Active Substance: EMTRICITABINE\TENOFOVIR ALAFENAMIDE FUMARATE
  7. EPIVIR [Concomitant]
     Active Substance: LAMIVUDINE
  8. INVIRASE [Concomitant]
     Active Substance: SAQUINAVIR MESYLATE
  9. ISENTRESS [Concomitant]
     Active Substance: RALTEGRAVIR POTASSIUM
  10. VIDEX [Concomitant]
     Active Substance: DIDANOSINE
  11. VIDEX EC [Concomitant]
     Active Substance: DIDANOSINE
  12. STRIBILD [Suspect]
     Active Substance: COBICISTAT\ELVITEGRAVIR\EMTRICITABINE\TENOFOVIR DISOPROXIL FUMARATE
     Indication: HIV INFECTION
     Dosage: UNK
     Route: 048
     Dates: start: 201201, end: 201306
  13. ZERIT [Concomitant]
     Active Substance: STAVUDINE
  14. EDURANT [Concomitant]
     Active Substance: RILPIVIRINE HYDROCHLORIDE
  15. JULUCA [Concomitant]
     Active Substance: DOLUTEGRAVIR SODIUM\RILPIVIRINE HYDROCHLORIDE
  16. PREZCOBIX [Concomitant]
     Active Substance: COBICISTAT\DARUNAVIR ETHANOLATE
  17. RESCRIPTOR [Concomitant]
     Active Substance: DELAVIRDINE MESYLATE
  18. TIVICAY [Concomitant]
     Active Substance: DOLUTEGRAVIR SODIUM
  19. VIREAD [Suspect]
     Active Substance: TENOFOVIR DISOPROXIL FUMARATE
     Indication: HIV INFECTION
     Dosage: UNK
     Route: 048
     Dates: start: 200110, end: 200408
  20. TRUVADA [Suspect]
     Active Substance: EMTRICITABINE\TENOFOVIR DISOPROXIL FUMARATE
     Indication: HIV INFECTION
     Dosage: UNK
     Route: 048
     Dates: start: 200408, end: 201607
  21. ISENTRESS [Concomitant]
     Active Substance: RALTEGRAVIR POTASSIUM
  22. SELZENTRY [Concomitant]
     Active Substance: MARAVIROC
  23. ACYCLOVIR [ACICLOVIR] [Concomitant]
     Active Substance: ACYCLOVIR
  24. FUZEON [Concomitant]
     Active Substance: ENFUVIRTIDE
  25. INTELENCE [Concomitant]
     Active Substance: ETRAVIRINE
  26. RETROVIR [Concomitant]
     Active Substance: ZIDOVUDINE

REACTIONS (8)
  - Multiple fractures [Unknown]
  - Chronic kidney disease [Unknown]
  - Bone density decreased [Not Recovered/Not Resolved]
  - Emotional distress [Unknown]
  - Osteonecrosis [Recovered/Resolved]
  - Tooth loss [Unknown]
  - Bone loss [Unknown]
  - Pain [Unknown]

NARRATIVE: CASE EVENT DATE: 200812
